FAERS Safety Report 8585626-6 (Version None)
Quarter: 2012Q3

REPORT INFORMATION
  Report Type: 
  Country: None (occurrence: None)
  Receive Date: 20120810
  Receipt Date: 20120809
  Transmission Date: 20120928
  Serious: Yes (Death, Hospitalization, Other)
  Sender: FDA-Public Use
  Company Number: PHHY2012CR068871

PATIENT
  Age: 35 Year
  Sex: Male

DRUGS (1)
  1. IMATINIB MESYLATE [Suspect]
     Indication: CHRONIC MYELOID LEUKAEMIA
     Dosage: 400 MG, DAILY
     Route: 048

REACTIONS (3)
  - ESCHERICHIA SEPSIS [None]
  - COLITIS ULCERATIVE [None]
  - CHRONIC MYELOID LEUKAEMIA TRANSFORMATION [None]
